FAERS Safety Report 4681385-8 (Version None)
Quarter: 2005Q2

REPORT INFORMATION
  Report Type: 
  Country: None (occurrence: None)
  Receive Date: 20050603
  Receipt Date: 20050324
  Transmission Date: 20051028
  Serious: Yes (Disabling)
  Sender: FDA-Public Use
  Company Number: 2005SE01770

PATIENT
  Sex: Male

DRUGS (7)
  1. BLOPRESS TABLETS 8 [Suspect]
     Indication: HYPERTENSION
     Route: 048
     Dates: start: 20041228, end: 20050319
  2. BASEN TABLETS 0.3 [Concomitant]
     Indication: DIABETES MELLITUS
     Route: 048
     Dates: start: 20041102
  3. AMLODIN [Concomitant]
     Indication: HYPERTENSION
     Route: 048
     Dates: start: 20041102
  4. PLETAL [Concomitant]
     Indication: CEREBRAL INFARCTION
     Route: 048
     Dates: start: 20041102
  5. DORNER [Concomitant]
     Indication: CEREBRAL INFARCTION
     Route: 048
     Dates: start: 20041102, end: 20050319
  6. DAONIL [Concomitant]
     Indication: DIABETES MELLITUS
     Route: 048
     Dates: start: 20041102, end: 20050319
  7. GAMOFA [Concomitant]
     Indication: GASTRITIS
     Route: 048
     Dates: start: 20041102, end: 20050319

REACTIONS (3)
  - MYELODYSPLASTIC SYNDROME [None]
  - REFRACTORY ANAEMIA [None]
  - THROMBOCYTOPENIA [None]
